FAERS Safety Report 5073455-X (Version None)
Quarter: 2006Q3

REPORT INFORMATION
  Report Type: 
  Country: None (occurrence: None)
  Receive Date: 20060808
  Receipt Date: 20060707
  Transmission Date: 20061208
  Serious: Yes (Other)
  Sender: FDA-Public Use
  Company Number: PHRM2006FR02020

PATIENT
  Age: 35 Year
  Sex: Female
  Weight: 55 kg

DRUGS (1)
  1. LAMISIL [Suspect]
     Indication: NAIL TINEA
     Dosage: 250 MG, QD
     Route: 048
     Dates: start: 20040901, end: 20050301

REACTIONS (5)
  - DYSAESTHESIA [None]
  - GRANULOMA [None]
  - INFLAMMATION [None]
  - PARAESTHESIA [None]
  - RASH MACULO-PAPULAR [None]
